FAERS Safety Report 18478660 (Version 1)
Quarter: 2020Q4

REPORT INFORMATION
  Report Type: Report from Study
  Country: None (occurrence: US)
  Receive Date: 20201109
  Receipt Date: 20201109
  Transmission Date: 20210114
  Serious: Yes (Other)
  Sender: FDA-Public Use
  Company Number: US-ABBVIE-20K-163-3573407-00

PATIENT
  Sex: Female
  Weight: 86.26 kg

DRUGS (3)
  1. CORTEF [Concomitant]
     Active Substance: HYDROCORTISONE
     Indication: PAIN
  2. HUMIRA [Suspect]
     Active Substance: ADALIMUMAB
     Indication: RHEUMATOID ARTHRITIS
     Dosage: CITRATE FREE
     Route: 058
     Dates: start: 2016, end: 2016
  3. LOSARTAN. [Concomitant]
     Active Substance: LOSARTAN
     Indication: HYPERTENSION

REACTIONS (6)
  - Arthralgia [Not Recovered/Not Resolved]
  - Aneurysm [Recovered/Resolved]
  - Spinal rod insertion [Unknown]
  - Cataract [Unknown]
  - Cataract [Recovering/Resolving]
  - Pain in extremity [Not Recovered/Not Resolved]

NARRATIVE: CASE EVENT DATE: 2008
